FAERS Safety Report 9951566 (Version 1)
Quarter: 2014Q1

REPORT INFORMATION
  Report Type: Spontaneous
  Country: US (occurrence: US)
  Receive Date: 20140304
  Receipt Date: 20140304
  Transmission Date: 20141002
  Serious: No
  Sender: FDA-Public Use
  Company Number: US-ABBVIE-13P-163-1070798-00

PATIENT
  Sex: Female

DRUGS (3)
  1. HUMIRA [Suspect]
     Indication: COLITIS ULCERATIVE
  2. HUMIRA [Suspect]
     Dates: end: 2013
  3. USRODIOL [Concomitant]
     Indication: LIVER DISORDER

REACTIONS (2)
  - Injection site reaction [Unknown]
  - Rash generalised [Unknown]
